FAERS Safety Report 8006568-0 (Version None)
Quarter: 2011Q4

REPORT INFORMATION
  Report Type: 
  Country: None (occurrence: None)
  Receive Date: 20111227
  Receipt Date: 20111217
  Transmission Date: 20120403
  Serious: Yes (Other)
  Sender: FDA-Public Use
  Company Number: US-PAR PHARMACEUTICAL, INC-2011SCPR003561

PATIENT

DRUGS (5)
  1. ZOLEDRONIC ACID [Suspect]
     Indication: MULTIPLE MYELOMA
     Dosage: 4 MG, EVERY 3 WEEKS FOR 5.5 YEARS
     Route: 042
  2. PREDNISONE [Suspect]
     Indication: MULTIPLE MYELOMA
     Dosage: 50 MG, EVERY OTHER DAY
     Route: 048
     Dates: start: 20000101, end: 20030101
  3. METHYLPREDNISOLONE [Suspect]
     Indication: MULTIPLE MYELOMA
     Dosage: UNK UNK, UNKNOWN
     Route: 048
     Dates: start: 20050501, end: 20080401
  4. DEXAMETHASONE [Suspect]
     Indication: MULTIPLE MYELOMA
     Dosage: UNK, UNKNOWN 5 CYCLES
     Route: 042
  5. PAMIDRONATE DISODIUM [Suspect]
     Indication: MULTIPLE MYELOMA
     Dosage: 90 MG, MONTHLY FOR 2 YEARS
     Route: 042

REACTIONS (1)
  - STRESS FRACTURE [None]
